FAERS Safety Report 14283710 (Version 1)
Quarter: 2017Q4

REPORT INFORMATION
  Report Type: Spontaneous
  Country: US (occurrence: US)
  Receive Date: 20171213
  Receipt Date: 20171213
  Transmission Date: 20180321
  Serious: No
  Sender: FDA-Public Use
  Company Number: None

PATIENT
  Age: 63 Year
  Sex: Male
  Weight: 78.75 kg

DRUGS (5)
  1. ATORVASTATIN [Concomitant]
     Active Substance: ATORVASTATIN
  2. TYLONOL [Concomitant]
  3. DELSYM [Suspect]
     Active Substance: DEXTROMETHORPHAN
     Indication: COUGH
     Dosage: ?          QUANTITY:1 ML;?
     Route: 048
     Dates: start: 20171212, end: 20171212
  4. OMEPRAZOLE. [Concomitant]
     Active Substance: OMEPRAZOLE
  5. MOTRIN [Concomitant]
     Active Substance: IBUPROFEN

REACTIONS (7)
  - Visual impairment [None]
  - Nausea [None]
  - Diarrhoea [None]
  - Malaise [None]
  - Confusional state [None]
  - Abdominal discomfort [None]
  - Altered state of consciousness [None]

NARRATIVE: CASE EVENT DATE: 20171212
